FAERS Safety Report 6305821-6 (Version None)
Quarter: 2009Q3

REPORT INFORMATION
  Report Type: 
  Country: None (occurrence: None)
  Receive Date: 20090810
  Receipt Date: 20090303
  Transmission Date: 20100115
  Serious: Yes (Hospitalization)
  Sender: FDA-Public Use
  Company Number: US-JNJFOC-20090301191

PATIENT
  Age: 6 Year
  Sex: Female
  Weight: 16.7831 kg

DRUGS (4)
  1. CHILDREN'S MOTRIN [Suspect]
     Indication: PAIN
     Dosage: 150 MG, 3 IN 1 DAY, ORAL
     Route: 048
     Dates: start: 20090225, end: 20090225
  2. CHILDREN'S MOTRIN [Suspect]
     Indication: SWELLING
     Dosage: 150 MG, 3 IN 1 DAY, ORAL
     Route: 048
     Dates: start: 20090225, end: 20090225
  3. CHILDREN'S MOTRIN [Suspect]
     Indication: PAIN
     Dosage: 150 MG, 3 IN 1 DAY ORAL
     Route: 048
     Dates: start: 20090226, end: 20090227
  4. CHILDREN'S MOTRIN [Suspect]
     Indication: SWELLING
     Dosage: 150 MG, 3 IN 1 DAY ORAL
     Route: 048
     Dates: start: 20090226, end: 20090227

REACTIONS (1)
  - RASH PRURITIC [None]
